FAERS Safety Report 11898226 (Version 1)
Quarter: 2016Q1

REPORT INFORMATION
  Report Type: Spontaneous
  Country: US (occurrence: None)
  Receive Date: 20160107
  Receipt Date: 20160107
  Transmission Date: 20160526
  Serious: Yes (Disabling)
  Sender: FDA-Public Use
  Company Number: None

PATIENT
  Age: 68 Year
  Sex: Male
  Weight: 111.13 kg

DRUGS (13)
  1. LOVASTATIN 10 MG LUPIN PHAR [Suspect]
     Active Substance: LOVASTATIN
     Indication: BLOOD CHOLESTEROL INCREASED
     Dosage: 1 PILL
  2. FUROSEMIDE. [Concomitant]
     Active Substance: FUROSEMIDE
  3. LOSARTEN [Concomitant]
     Active Substance: LOSARTAN
  4. ETODOLAC. [Concomitant]
     Active Substance: ETODOLAC
  5. LUMIGAN [Concomitant]
     Active Substance: BIMATOPROST
  6. SPIRONOLACTONE. [Concomitant]
     Active Substance: SPIRONOLACTONE
  7. CARVEDILOL. [Concomitant]
     Active Substance: CARVEDILOL
  8. BABY ASPIRIN [Concomitant]
     Active Substance: ASPIRIN
  9. MULTIFITAMIN [Concomitant]
  10. NITROSTAT [Concomitant]
     Active Substance: NITROGLYCERIN
  11. HYDROCODONE/ACTETAMINOPHEN [Concomitant]
  12. DEFIBRILLATOR [Concomitant]
  13. VITAMIN D [Concomitant]
     Active Substance: CHOLECALCIFEROL

REACTIONS (3)
  - Arthralgia [None]
  - Myalgia [None]
  - Musculoskeletal chest pain [None]

NARRATIVE: CASE EVENT DATE: 20160106
